FAERS Safety Report 5692265-3 (Version None)
Quarter: 2008Q2

REPORT INFORMATION
  Report Type: 
  Country: None (occurrence: None)
  Receive Date: 20080402
  Receipt Date: 20080325
  Transmission Date: 20081010
  Serious: Yes (Life-Threatening)
  Sender: FDA-Public Use
  Company Number: JP-PFIZER INC-2008027330

PATIENT
  Sex: Female
  Weight: 50 kg

DRUGS (3)
  1. NORVASC [Suspect]
     Indication: HYPERTENSION
     Route: 048
     Dates: start: 20051130, end: 20070501
  2. LAXOBERON [Concomitant]
     Indication: CONSTIPATION
     Route: 048
  3. DASEN [Concomitant]
     Route: 048

REACTIONS (1)
  - MYELODYSPLASTIC SYNDROME [None]
